FAERS Safety Report 4728117-2 (Version None)
Quarter: 2005Q3

REPORT INFORMATION
  Report Type: 
  Country: None (occurrence: None)
  Receive Date: 20050728
  Receipt Date: 20050728
  Transmission Date: 20060218
  Serious: No
  Sender: FDA-Public Use
  Company Number: None

PATIENT
  Age: 53 Year
  Sex: Male
  Weight: 83 kg

DRUGS (16)
  1. AVASTIN [Suspect]
     Indication: COLON CANCER METASTATIC
     Dosage: 425MG Q14DAYS INTRAVENOUS
     Route: 042
     Dates: start: 20050221, end: 20050512
  2. ASPIRIN [Concomitant]
  3. TOPROL-XL [Concomitant]
  4. AVAPRO [Concomitant]
  5. FESO4 [Concomitant]
  6. VIT C [Concomitant]
  7. LEXAPRO [Concomitant]
  8. COMPAZINE [Concomitant]
  9. OXALIPLATIN [Concomitant]
  10. FLUOROURACIL [Concomitant]
  11. LEUCOVORIN [Concomitant]
  12. DEX [Concomitant]
  13. PRE CHEMO [Concomitant]
  14. ALOXI [Concomitant]
  15. CALCIUM GLUG [Concomitant]
  16. MAGNESIUM SULFAATE [Concomitant]

REACTIONS (3)
  - EPISTAXIS [None]
  - NASAL SEPTUM PERFORATION [None]
  - RHINORRHOEA [None]
